FAERS Safety Report 12456315 (Version 3)
Quarter: 2024Q4

REPORT INFORMATION
  Report Type: Report from Study
  Country: JP (occurrence: JP)
  Receive Date: 20160610
  Receipt Date: 20241104
  Transmission Date: 20250115
  Serious: Yes (Hospitalization, Other)
  Sender: AMGEN
  Company Number: JP-KYOWAKIRIN-2016JPN-NSP000437

PATIENT
  Age: 90 Year
  Sex: Male

DRUGS (22)
  1. DARBEPOETIN ALFA [Suspect]
     Active Substance: DARBEPOETIN ALFA
     Indication: Myelodysplastic syndrome
     Dosage: 240 MICROGRAM, QWK
     Route: 058
     Dates: start: 20150630, end: 20150915
  2. DARBEPOETIN ALFA [Suspect]
     Active Substance: DARBEPOETIN ALFA
     Dosage: 240 MICROGRAM, QWK
     Route: 058
     Dates: start: 20150929, end: 20151117
  3. CEFEPIME HYDROCHLORIDE [Suspect]
     Active Substance: CEFEPIME HYDROCHLORIDE
     Indication: Product used for unknown indication
     Dosage: 4 G, UNK
     Route: 042
     Dates: start: 20160129, end: 20160202
  4. OMEPRAZOLE [Concomitant]
     Active Substance: OMEPRAZOLE
     Indication: Gastric ulcer
     Dosage: 10 MG, UNK
     Route: 048
     Dates: end: 20160112
  5. CASODEX [Concomitant]
     Active Substance: BICALUTAMIDE
     Indication: Prostate cancer
     Dosage: 80 MG, UNK
     Route: 048
  6. CASODEX [Concomitant]
     Active Substance: BICALUTAMIDE
     Dosage: 80 MG, UNK
     Route: 048
  7. METHYLCOBALAMIN [Concomitant]
     Active Substance: METHYLCOBALAMIN
     Indication: Neuropathy peripheral
     Dosage: 1500 MUG, UNK
     Route: 048
  8. FOLIC ACID [Concomitant]
     Active Substance: FOLIC ACID
     Indication: Myelodysplastic syndrome
     Dosage: 15 MG, UNK
     Route: 048
     Dates: start: 20150722
  9. MENATETRENONE [Concomitant]
     Active Substance: MENATETRENONE
     Indication: Myelodysplastic syndrome
     Dosage: 45 MG, UNK
     Route: 048
     Dates: start: 20150818
  10. ALFAROL [Concomitant]
     Active Substance: ALFACALCIDOL
     Indication: Myelodysplastic syndrome
     Dosage: 1 MUG, UNK
     Route: 048
     Dates: start: 20150818
  11. BIFIDOBACTERIUM SPP. [Concomitant]
     Active Substance: BIFIDOBACTERIUM SPP.
     Indication: Constipation
     Dosage: 3 G, UNK
     Route: 048
  12. MAGNESIUM OXIDE [Concomitant]
     Active Substance: MAGNESIUM OXIDE
     Indication: Constipation
     Dosage: 1 G, UNK
     Route: 048
  13. GARENOXACIN MESYLATE [Concomitant]
     Active Substance: GARENOXACIN MESYLATE
     Indication: Product used for unknown indication
     Dosage: 400 MG, UNK
     Route: 048
     Dates: start: 20160105, end: 20160113
  14. GARENOXACIN MESYLATE [Concomitant]
     Active Substance: GARENOXACIN MESYLATE
     Dosage: 400 MG, UNK
     Route: 048
     Dates: start: 20160224, end: 20160229
  15. FLUCONAZOLE [Concomitant]
     Active Substance: FLUCONAZOLE
     Indication: Product used for unknown indication
     Dosage: 200 MG, UNK
     Route: 048
     Dates: start: 20160105, end: 20160128
  16. DIETARY SUPPLEMENT\PROBIOTICS [Concomitant]
     Active Substance: DIETARY SUPPLEMENT\PROBIOTICS NOS
     Indication: Product used for unknown indication
     Dosage: 3 G, UNK
     Route: 048
     Dates: start: 20160105
  17. LANSOPRAZOLE [Concomitant]
     Active Substance: LANSOPRAZOLE
     Indication: Gastric ulcer
     Dosage: 15 MG, UNK
     Route: 048
     Dates: start: 20160112
  18. VANCOMYCIN [Concomitant]
     Active Substance: VANCOMYCIN
     Dosage: 1.5 G, UNK
     Route: 041
     Dates: start: 20160122, end: 20160128
  19. ITRACONAZOLE [Concomitant]
     Active Substance: ITRACONAZOLE
     Indication: Product used for unknown indication
     Dosage: 200 MG, UNK
     Route: 048
     Dates: start: 20160129, end: 20160308
  20. MEROPENEM [Concomitant]
     Active Substance: MEROPENEM
     Dosage: 3 G, UNK
     Route: 041
     Dates: start: 20160116
  21. SULFAMETHOXAZOLE\TRIMETHOPRIM [Concomitant]
     Active Substance: SULFAMETHOXAZOLE\TRIMETHOPRIM
     Dosage: 1 G, UNK
     Route: 048
     Dates: start: 20160128
  22. ZOSYN [Concomitant]
     Active Substance: PIPERACILLIN SODIUM\TAZOBACTAM SODIUM
     Dosage: 13.5 G, UNK
     Dates: end: 20160116

REACTIONS (4)
  - Transformation to acute myeloid leukaemia [Not Recovered/Not Resolved]
  - Pneumonia [Not Recovered/Not Resolved]
  - Platelet count decreased [Not Recovered/Not Resolved]
  - Tremor [Recovered/Resolved]

NARRATIVE: CASE EVENT DATE: 20160105
